FAERS Safety Report 14048651 (Version 3)
Quarter: 2017Q4

REPORT INFORMATION
  Report Type: Spontaneous
  Country: US (occurrence: US)
  Receive Date: 20171005
  Receipt Date: 20171114
  Transmission Date: 20180321
  Serious: Yes (Hospitalization, Other)
  Sender: FDA-Public Use
  Company Number: US-INTERCEPT-PMOCA2017000996

PATIENT

DRUGS (21)
  1. PERIACTIN [Concomitant]
     Active Substance: CYPROHEPTADINE HYDROCHLORIDE
     Dosage: 4 MG, TID
     Route: 048
  2. WOMEN^S MULTI                      /02225001/ [Concomitant]
     Dosage: 1 TABLET, QD
     Route: 065
  3. DOXYCYCLINE HYCLATE. [Concomitant]
     Active Substance: DOXYCYCLINE HYCLATE
     Dosage: 100 MG, BID
     Route: 048
  4. ALDACTONE [Concomitant]
     Active Substance: SPIRONOLACTONE
     Dosage: 50 MG, QD
     Route: 048
  5. REQUIP [Concomitant]
     Active Substance: ROPINIROLE HYDROCHLORIDE
     Dosage: 0.5 MG, QD
     Route: 048
  6. OCALIVA [Suspect]
     Active Substance: OBETICHOLIC ACID
     Indication: BILIARY CIRRHOSIS PRIMARY
     Dosage: 5 MG, QD
     Route: 048
     Dates: start: 201702, end: 20170913
  7. LASIX [Concomitant]
     Active Substance: FUROSEMIDE
     Dosage: 20 MG, QD
     Route: 048
  8. FENOFIBRATE. [Concomitant]
     Active Substance: FENOFIBRATE
     Dosage: 130 MG, QD
     Route: 048
  9. URSODIOL. [Concomitant]
     Active Substance: URSODIOL
     Dosage: 1200 MG, QD, NIGHTLY
     Route: 048
  10. FOLIC ACID. [Concomitant]
     Active Substance: FOLIC ACID
     Dosage: 1 MG, QD
     Route: 048
  11. CIPROFLOXACIN. [Suspect]
     Active Substance: CIPROFLOXACIN
     Indication: URINARY TRACT INFECTION
     Dosage: UNK
     Dates: start: 20170724, end: 20170731
  12. ROPINIROLE. [Concomitant]
     Active Substance: ROPINIROLE
     Dosage: 1 MG, QD, 1-3 HOURS BEFORE BEDTIME
     Route: 048
  13. RIFAXIMIN. [Concomitant]
     Active Substance: RIFAXIMIN
     Dosage: 550 MG, QD
     Route: 048
  14. AFRIN SINUS [Concomitant]
     Active Substance: OXYMETAZOLINE HYDROCHLORIDE
     Dosage: 2 SPRAYS, NARES-BOTH BID PRN
     Route: 045
  15. MUCINEX D [Concomitant]
     Active Substance: GUAIFENESIN\PSEUDOEPHEDRINE HYDROCHLORIDE
     Dosage: 1 TABLET, Q12H
     Route: 048
  16. DANAZOL. [Suspect]
     Active Substance: DANAZOL
     Dosage: 200 MG, BID
     Route: 048
     Dates: start: 201702, end: 20171018
  17. BENZONATATE. [Concomitant]
     Active Substance: BENZONATATE
     Dosage: 100 MG, TID, FOR 10 DAYS, PRN
     Route: 048
  18. FERROUS SULFATE. [Concomitant]
     Active Substance: FERROUS SULFATE
     Dosage: 325 MG, QD
     Route: 048
  19. RITUXAN [Concomitant]
     Active Substance: RITUXIMAB
     Dosage: 10 MG/ML, EVERY 3 MONTHS
     Route: 042
  20. LACTULOSE. [Concomitant]
     Active Substance: LACTULOSE
     Dosage: 10G/15ML ORAL AND RECTAL LIQUID, DAILY
  21. CETRIZINE [Concomitant]
     Active Substance: CETIRIZINE HYDROCHLORIDE
     Dosage: 10 MG, QD
     Route: 065

REACTIONS (12)
  - Jaundice [Unknown]
  - Splenomegaly [Unknown]
  - Fatigue [Unknown]
  - Vomiting [Unknown]
  - Hepatic failure [Unknown]
  - Hyperbilirubinaemia [Unknown]
  - Leukocytosis [Unknown]
  - Nausea [Unknown]
  - Hepatomegaly [Unknown]
  - Sinusitis [Unknown]
  - Urinary tract infection [Unknown]
  - Renal impairment [Unknown]

NARRATIVE: CASE EVENT DATE: 2017
